FAERS Safety Report 13123036 (Version 1)
Quarter: 2017Q1

REPORT INFORMATION
  Report Type: Spontaneous
  Country: US (occurrence: US)
  Receive Date: 20170117
  Receipt Date: 20170117
  Transmission Date: 20170428
  Serious: Yes (Hospitalization, Other)
  Sender: FDA-Public Use
  Company Number: US-BAYER-2017-005793

PATIENT
  Age: 67 Year
  Sex: Male

DRUGS (1)
  1. CALCIUM CARBONATE. [Suspect]
     Active Substance: CALCIUM CARBONATE
     Indication: GASTROINTESTINAL DISORDER
     Dosage: 20 DF, QD

REACTIONS (3)
  - Overdose [None]
  - Ventricular tachycardia [Recovered/Resolved]
  - Milk-alkali syndrome [Recovered/Resolved]
